FAERS Safety Report 24603339 (Version 1)
Quarter: 2024Q4

REPORT INFORMATION
  Report Type: Spontaneous
  Country: RU (occurrence: RU)
  Receive Date: 20241111
  Receipt Date: 20241111
  Transmission Date: 20250115
  Serious: Yes (Other)
  Sender: SERVIER
  Company Number: RU-SERVIER-S24013995

PATIENT

DRUGS (10)
  1. ONCASPAR [Suspect]
     Active Substance: PEGASPARGASE
     Indication: Acute lymphocytic leukaemia
     Dosage: 550 IU, UNK
     Route: 042
     Dates: start: 20240422, end: 20240422
  2. ONCASPAR [Suspect]
     Active Substance: PEGASPARGASE
     Dosage: 600 IU, UNK
     Route: 042
     Dates: start: 20240627, end: 20240627
  3. ONCASPAR [Suspect]
     Active Substance: PEGASPARGASE
     Dosage: 600 IU, UNK
     Route: 042
     Dates: start: 20240629, end: 20240629
  4. ONCASPAR [Suspect]
     Active Substance: PEGASPARGASE
     Dosage: 600 IU, UNK
     Route: 042
     Dates: start: 20240710, end: 20240710
  5. ACETAMINOPHEN [Concomitant]
     Active Substance: ACETAMINOPHEN
     Indication: Premedication
     Dosage: UNK
     Route: 065
     Dates: start: 20240627, end: 20240627
  6. DIPHENHYDRAMINE [Concomitant]
     Active Substance: DIPHENHYDRAMINE
     Indication: Premedication
     Dosage: UNK
     Route: 065
     Dates: start: 20240627, end: 20240627
  7. CETIRIZINE [Concomitant]
     Active Substance: CETIRIZINE HYDROCHLORIDE
     Indication: Premedication
     Dosage: UNK
     Route: 065
     Dates: start: 20240627, end: 20240627
  8. METHYLPREDNISOLONE [Concomitant]
     Active Substance: METHYLPREDNISOLONE
     Indication: Premedication
     Dosage: 2.5 MG/KG
     Route: 065
     Dates: start: 20240627, end: 20240627
  9. METHYLPREDNISOLONE [Concomitant]
     Active Substance: METHYLPREDNISOLONE
     Dosage: 5 MG/KG
     Route: 065
     Dates: start: 20240629, end: 20240629
  10. METHYLPREDNISOLONE [Concomitant]
     Active Substance: METHYLPREDNISOLONE
     Dosage: 5 MG/KG
     Route: 065
     Dates: start: 20240710, end: 20240710

REACTIONS (6)
  - Anaphylactic reaction [Recovered/Resolved]
  - Nausea [Recovered/Resolved]
  - Vomiting [Recovered/Resolved]
  - Urticaria [Recovered/Resolved]
  - Urticaria [Recovered/Resolved]
  - Enzyme activity abnormal [Not Recovered/Not Resolved]

NARRATIVE: CASE EVENT DATE: 20240101
